FAERS Safety Report 8843759 (Version 1)
Quarter: 2012Q4

REPORT INFORMATION
  Report Type: 
  Country: US (occurrence: US)
  Receive Date: 20121016
  Receipt Date: 20121016
  Transmission Date: 20130627
  Serious: Yes (Hospitalization, Other)
  Sender: FDA-Public Use
  Company Number: US-AMGEN-USASP2012065234

PATIENT
  Age: 1 Year
  Sex: Male

DRUGS (1)
  1. NEUPOGEN [Suspect]
     Indication: IDIOPATHIC NEUTROPENIA
     Dosage: 3 mug/kg, qd
     Dates: start: 201204

REACTIONS (4)
  - Abasia [Unknown]
  - Red blood cell count decreased [Unknown]
  - Asthenia [Unknown]
  - Bone pain [Unknown]
